FAERS Safety Report 24865391 (Version 1)
Quarter: 2025Q1

REPORT INFORMATION
  Report Type: Report from Study
  Country: US (occurrence: US)
  Receive Date: 20250121
  Receipt Date: 20250121
  Transmission Date: 20250409
  Serious: Yes (Hospitalization, Other)
  Sender: EMD SERONO INC
  Company Number: US-Merck Healthcare KGaA-2024050119

PATIENT
  Sex: Male

DRUGS (1)
  1. MAVENCLAD [Suspect]
     Active Substance: CLADRIBINE
     Indication: Multiple sclerosis

REACTIONS (3)
  - Blood test abnormal [Unknown]
  - Lymphocyte count decreased [Unknown]
  - Urinary tract infection [Unknown]
